FAERS Safety Report 8646480 (Version 2)
Quarter: 2012Q4

REPORT INFORMATION
  Report Type: Report from Study
  Country: JP (occurrence: JP)
  Receive Date: 20120702
  Receipt Date: 20120828
  Transmission Date: 20130627
  Serious: Yes (Other)
  Sender: FDA-Public Use
  Company Number: JP-JNJFOC-20120613447

PATIENT
  Age: 38 Year
  Sex: Female
  Weight: 48 kg

DRUGS (10)
  1. SIMPONI [Suspect]
     Indication: RHEUMATOID ARTHRITIS
     Route: 058
     Dates: start: 20120510
  2. SIMPONI [Suspect]
     Indication: RHEUMATOID ARTHRITIS
     Route: 058
     Dates: start: 20120405
  3. SIMPONI [Suspect]
     Indication: RHEUMATOID ARTHRITIS
     Route: 058
     Dates: start: 20120309
  4. SIMPONI [Suspect]
     Indication: RHEUMATOID ARTHRITIS
     Route: 058
     Dates: start: 20120116
  5. SIMPONI [Suspect]
     Indication: RHEUMATOID ARTHRITIS
     Route: 058
     Dates: start: 20111219
  6. SIMPONI [Suspect]
     Indication: RHEUMATOID ARTHRITIS
     Route: 058
     Dates: start: 20111121
  7. METHOTREXATE [Suspect]
     Indication: RHEUMATOID ARTHRITIS
  8. PREDNISOLONE ACETATE [Suspect]
     Indication: RHEUMATOID ARTHRITIS
     Route: 048
  9. LOXONIN [Concomitant]
     Indication: RHEUMATOID ARTHRITIS
     Route: 048
  10. MUCOSTA [Concomitant]
     Indication: PROPHYLAXIS
     Route: 048

REACTIONS (2)
  - Pneumonia [Recovered/Resolved]
  - Hepatic function abnormal [Recovered/Resolved]
